FAERS Safety Report 16289776 (Version 1)
Quarter: 2019Q2

REPORT INFORMATION
  Report Type: Report from Study
  Country: US (occurrence: US)
  Receive Date: 20190509
  Receipt Date: 20190509
  Transmission Date: 20190711
  Serious: Yes (Other)
  Sender: FDA-Public Use
  Company Number: US-AEGERION PHARMACEUTICAL, INC-AEGR004249

PATIENT
  Age: 9 Year
  Sex: Female

DRUGS (4)
  1. METFORMIN [Concomitant]
     Active Substance: METFORMIN HYDROCHLORIDE
     Dosage: 800 MG, QD IN THE AFTERNOON
     Route: 048
  2. VALPROIC ACID. [Concomitant]
     Active Substance: VALPROIC ACID
     Indication: SEIZURE
     Dosage: 250 MG, BID
     Dates: start: 201901
  3. METRELEPTIN [Suspect]
     Active Substance: METRELEPTIN
     Indication: INSULIN RESISTANCE
     Dosage: 1.25 MG, EVERY 12 HOURS
     Route: 058
     Dates: start: 20181024
  4. METFORMIN [Concomitant]
     Active Substance: METFORMIN HYDROCHLORIDE
     Indication: PRODUCT USED FOR UNKNOWN INDICATION
     Dosage: 400 MG, BID
     Route: 048

REACTIONS (2)
  - Hamartoma [Not Recovered/Not Resolved]
  - Glioma [Not Recovered/Not Resolved]

NARRATIVE: CASE EVENT DATE: 20180417
